FAERS Safety Report 6049245-8 (Version None)
Quarter: 2009Q1

REPORT INFORMATION
  Report Type: 
  Country: None (occurrence: None)
  Receive Date: 20090123
  Receipt Date: 20090115
  Transmission Date: 20090719
  Serious: Yes (Hospitalization, Other)
  Sender: FDA-Public Use
  Company Number: FR-ABBOTT-09P-056-0498447-00

PATIENT
  Age: 64 Year
  Sex: Female

DRUGS (7)
  1. SEVOFLURANE [Suspect]
     Indication: GENERAL ANAESTHESIA
     Dates: start: 20060110
  2. PROPOFOL [Suspect]
     Indication: GENERAL ANAESTHESIA
     Dates: start: 20060110
  3. CISATRACURIUM BESILATE [Suspect]
     Indication: GENERAL ANAESTHESIA
     Dates: start: 20060110
  4. REMIFENTANIL [Suspect]
     Indication: GENERAL ANAESTHESIA
     Dates: start: 20060110
  5. IOXAGLATE OF SODIUM AND OF MEGLUMINE [Suspect]
     Indication: DRUG USE FOR UNKNOWN INDICATION
     Dates: start: 20060110
  6. IODINE [Suspect]
     Indication: DRUG USE FOR UNKNOWN INDICATION
     Dates: start: 20060110
  7. POVIDONE IODINE [Suspect]
     Indication: DRUG USE FOR UNKNOWN INDICATION
     Dates: start: 20060110

REACTIONS (5)
  - ANAPHYLACTIC REACTION [None]
  - DYSPNOEA [None]
  - ERYTHEMA [None]
  - HYPOTENSION [None]
  - TACHYCARDIA [None]
